FAERS Safety Report 14152653 (Version 1)
Quarter: 2017Q4

REPORT INFORMATION
  Report Type: Spontaneous
  Country: RS (occurrence: RS)
  Receive Date: 20171102
  Receipt Date: 20171102
  Transmission Date: 20180321
  Serious: Yes (Other)
  Sender: FDA-Public Use
  Company Number: RS-LANNETT COMPANY, INC.-RS-2017LAN001160

PATIENT
  Age: 13 Year
  Sex: Male

DRUGS (6)
  1. MEROPENEM. [Concomitant]
     Active Substance: MEROPENEM
     Indication: ENCEPHALITIS BRAIN STEM
     Dosage: UNK
     Route: 065
  2. STREPTOMYCIN [Suspect]
     Active Substance: STREPTOMYCIN\STREPTOMYCIN SULFATE
     Indication: ENCEPHALITIS BRAIN STEM
     Dosage: UNK
     Route: 065
  3. VANCOMYCIN [Concomitant]
     Active Substance: VANCOMYCIN
     Indication: ENCEPHALITIS BRAIN STEM
     Dosage: UNK
     Route: 065
  4. RIFAMPICIN [Concomitant]
     Active Substance: RIFAMPIN
     Indication: ENCEPHALITIS BRAIN STEM
     Dosage: UNK
     Route: 065
  5. ISONIAZID. [Suspect]
     Active Substance: ISONIAZID
     Indication: ENCEPHALITIS BRAIN STEM
     Dosage: UNK
     Route: 065
  6. PYRAZINAMIDE. [Concomitant]
     Active Substance: PYRAZINAMIDE
     Indication: ENCEPHALITIS BRAIN STEM
     Dosage: UNK
     Route: 065

REACTIONS (1)
  - Drug reaction with eosinophilia and systemic symptoms [Recovered/Resolved]
